FAERS Safety Report 6791403-9 (Version None)
Quarter: 2010Q2

REPORT INFORMATION
  Report Type: 
  Country: None (occurrence: None)
  Receive Date: 20100621
  Receipt Date: 20100603
  Transmission Date: 20101027
  Serious: Yes (Other)
  Sender: FDA-Public Use
  Company Number: 2010RR-33774

PATIENT
  Age: 66 Year
  Sex: Male

DRUGS (1)
  1. CETIRIZINE HCL [Suspect]
     Dosage: 10MG

REACTIONS (2)
  - HEPATITIS [None]
  - HEPATOTOXICITY [None]
